FAERS Safety Report 7351307-X (Version None)
Quarter: 2011Q1

REPORT INFORMATION
  Report Type: 
  Country: None (occurrence: None)
  Receive Date: 20110314
  Receipt Date: 20100907
  Transmission Date: 20110831
  Serious: Yes (Hospitalization)
  Sender: FDA-Public Use
  Company Number: BE-SANOFI-AVENTIS-2010SA053312

PATIENT
  Sex: Male

DRUGS (3)
  1. OXALIPLATIN [Suspect]
  2. OXALIPLATIN [Suspect]
  3. 5-FU [Concomitant]

REACTIONS (4)
  - PYREXIA [None]
  - C-REACTIVE PROTEIN INCREASED [None]
  - URTICARIA [None]
  - WHITE BLOOD CELL COUNT INCREASED [None]
